FAERS Safety Report 11566188 (Version 1)
Quarter: 2015Q3

REPORT INFORMATION
  Report Type: Spontaneous
  Country: FR (occurrence: FR)
  Receive Date: 20150929
  Receipt Date: 20150929
  Transmission Date: 20151125
  Serious: Yes (Death)
  Sender: FDA-Public Use
  Company Number: FR-HOSPIRA-3013122

PATIENT
  Age: 71 Year
  Sex: Female

DRUGS (14)
  1. UROMITEXAN [Suspect]
     Active Substance: MESNA
     Indication: B-CELL LYMPHOMA
     Dosage: 6 COURSES X3
     Route: 042
     Dates: start: 20111008, end: 20120625
  2. DEXAMETHASONE. [Concomitant]
     Active Substance: DEXAMETHASONE
     Indication: PRODUCT USED FOR UNKNOWN INDICATION
     Dates: start: 20120712
  3. OXALIPLATINE [Concomitant]
     Active Substance: OXALIPLATIN
     Indication: PRODUCT USED FOR UNKNOWN INDICATION
     Dates: start: 20120712
  4. MABTHERA [Suspect]
     Active Substance: RITUXIMAB
     Indication: B-CELL LYMPHOMA
     Dosage: 8 COURSES
     Route: 042
     Dates: start: 20111010, end: 20120309
  5. DOXORUBICINE EBEWE [Suspect]
     Active Substance: DOXORUBICIN HYDROCHLORIDE
     Indication: B-CELL LYMPHOMA
     Route: 042
     Dates: start: 20111008, end: 20120309
  6. MITOXANTRONE [Concomitant]
     Active Substance: MITOXANTRONE HYDROCHLORIDE
     Indication: PRODUCT USED FOR UNKNOWN INDICATION
     Dosage: 2 CYCLES
     Dates: start: 201206
  7. CYTARABINE. [Concomitant]
     Active Substance: CYTARABINE
     Indication: PRODUCT USED FOR UNKNOWN INDICATION
     Dosage: HIGH DOSE
     Dates: start: 20120712
  8. CORTANCYL [Suspect]
     Active Substance: PREDNISONE
     Indication: B-CELL LYMPHOMA
     Dosage: 8 COURSES FROM D2 TO D5
     Route: 048
     Dates: start: 20111008, end: 20120313
  9. IFOSFAMIDE. [Concomitant]
     Active Substance: IFOSFAMIDE
     Indication: PRODUCT USED FOR UNKNOWN INDICATION
     Dosage: 2 CYCLES
     Dates: start: 201206
  10. VINCRISTINE SULFATE. [Suspect]
     Active Substance: VINCRISTINE SULFATE
     Indication: B-CELL LYMPHOMA
     Dosage: 8 COURSES
     Route: 042
     Dates: start: 20111008, end: 20120309
  11. METHYLPREDNISOLONE MYLAN           /00049602/ [Suspect]
     Active Substance: METHYLPREDNISOLONE SODIUM SUCCINATE
     Indication: B-CELL LYMPHOMA
     Dosage: 8 COURSES
     Route: 042
     Dates: start: 20111008, end: 20120309
  12. UROMITEXAN [Suspect]
     Active Substance: MESNA
     Indication: B-CELL LYMPHOMA
     Dosage: 6 COURSES X3
     Route: 042
     Dates: start: 20111008, end: 20120625
  13. ETOPOSIDE. [Concomitant]
     Active Substance: ETOPOSIDE
     Indication: PRODUCT USED FOR UNKNOWN INDICATION
     Dosage: 2 CYCLES
     Dates: start: 201206
  14. ENDOXAN                            /00021101/ [Suspect]
     Active Substance: CYCLOPHOSPHAMIDE
     Indication: B-CELL LYMPHOMA
     Dosage: 8 COURSES
     Route: 042
     Dates: start: 20111008, end: 20120309

REACTIONS (2)
  - Progressive multifocal leukoencephalopathy [Unknown]
  - No therapeutic response [Unknown]

NARRATIVE: CASE EVENT DATE: 201208
